FAERS Safety Report 20852912 (Version 1)
Quarter: 2022Q2

REPORT INFORMATION
  Report Type: Spontaneous
  Country: US (occurrence: None)
  Receive Date: 20220519
  Receipt Date: 20220519
  Transmission Date: 20220721
  Serious: Yes (Death)
  Sender: FDA-Public Use
  Company Number: None

PATIENT
  Age: 48 Year
  Sex: Male
  Weight: 131.5 kg

DRUGS (13)
  1. VERZENIO [Suspect]
     Active Substance: ABEMACICLIB
     Indication: Breast cancer male
     Dosage: FREQUENCY : TWICE A DAY;?
     Route: 048
  2. ACETAMINOPHEN [Concomitant]
     Active Substance: ACETAMINOPHEN
  3. COLACE [Concomitant]
     Active Substance: DOCUSATE SODIUM
  4. FERROUS SULFATE [Concomitant]
     Active Substance: FERROUS SULFATE
  5. GUAIFENESIN [Concomitant]
     Active Substance: GUAIFENESIN
  6. LUBIPROSTONE [Concomitant]
     Active Substance: LUBIPROSTONE
  7. MARINOL [Concomitant]
     Active Substance: DRONABINOL
  8. MIRALAX [Concomitant]
     Active Substance: POLYETHYLENE GLYCOL 3350
  9. OSCAL [Concomitant]
     Active Substance: CALCIUM CARBONATE
  10. TAMOXIFEN [Concomitant]
     Active Substance: TAMOXIFEN
  11. TRAMADOL [Concomitant]
     Active Substance: TRAMADOL
  12. TRAZODONE [Concomitant]
     Active Substance: TRAZODONE HYDROCHLORIDE
  13. MELATONIN [Concomitant]
     Active Substance: MELATONIN

REACTIONS (1)
  - Death [None]
